FAERS Safety Report 10076120 (Version 1)
Quarter: 2014Q2

REPORT INFORMATION
  Report Type: Spontaneous
  Country: JP (occurrence: JP)
  Receive Date: 20140414
  Receipt Date: 20140414
  Transmission Date: 20141212
  Serious: Yes (Death)
  Sender: FDA-Public Use
  Company Number: JP-ROXANE LABORATORIES, INC.-2014-RO-00564RO

PATIENT
  Age: 84 Year
  Sex: Female

DRUGS (3)
  1. METHOTREXATE [Suspect]
     Indication: RHEUMATOID ARTHRITIS
     Route: 065
  2. MIZORIBINE [Suspect]
     Indication: RHEUMATOID ARTHRITIS
     Dosage: 100 MG
     Route: 065
  3. PREDNISOLONE [Suspect]
     Indication: RHEUMATOID ARTHRITIS
     Dosage: 5 MG
     Route: 065

REACTIONS (3)
  - Herpes zoster cutaneous disseminated [Fatal]
  - Herpes zoster [Fatal]
  - Viraemia [Fatal]
